FAERS Safety Report 14001271 (Version 2)
Quarter: 2018Q1

REPORT INFORMATION
  Report Type: Spontaneous
  Country: US (occurrence: US)
  Receive Date: 20170922
  Receipt Date: 20180117
  Transmission Date: 20180508
  Serious: Yes (Hospitalization, Other)
  Sender: FDA-Public Use
  Company Number: US-JNJFOC-20170801221

PATIENT
  Age: 67 Year
  Sex: Female

DRUGS (2)
  1. XARELTO [Suspect]
     Active Substance: RIVAROXABAN
     Indication: PULMONARY EMBOLISM
     Dosage: VARYING DOSE OF 15MG AND 20MG
     Route: 048
     Dates: end: 20161031
  2. XARELTO [Suspect]
     Active Substance: RIVAROXABAN
     Indication: PULMONARY EMBOLISM
     Dosage: VARYING DOSE OF 15MG AND 20MG
     Route: 048
     Dates: start: 20160811, end: 201609

REACTIONS (4)
  - Varicose vein [Unknown]
  - Large intestinal ulcer haemorrhage [Unknown]
  - Bladder disorder [Unknown]
  - Rectal haemorrhage [Recovering/Resolving]

NARRATIVE: CASE EVENT DATE: 201608
